FAERS Safety Report 12843357 (Version 1)
Quarter: 2016Q4

REPORT INFORMATION
  Report Type: Spontaneous
  Country: US (occurrence: US)
  Receive Date: 20161013
  Receipt Date: 20161013
  Transmission Date: 20170207
  Serious: No
  Sender: FDA-Public Use
  Company Number: US-ACTAVIS-2016-04199

PATIENT
  Sex: Male
  Weight: 88 kg

DRUGS (1)
  1. GABAPENTIN (AELLC) [Suspect]
     Active Substance: GABAPENTIN
     Indication: CERVICAL MYELOPATHY
     Dosage: 600 MG, TID
     Route: 048

REACTIONS (2)
  - Activities of daily living impaired [Unknown]
  - Somnolence [Not Recovered/Not Resolved]
